FAERS Safety Report 5969312-4 (Version None)
Quarter: 2008Q4

REPORT INFORMATION
  Report Type: 
  Country: None (occurrence: None)
  Receive Date: 20081126
  Receipt Date: 20081118
  Transmission Date: 20090506
  Serious: Yes (Hospitalization)
  Sender: FDA-Public Use
  Company Number: PL-PFIZER INC-2005043262

PATIENT
  Sex: Female
  Weight: 72 kg

DRUGS (6)
  1. SU-011,248 [Suspect]
     Indication: RENAL CANCER METASTATIC
     Route: 048
     Dates: start: 20050204
  2. ESSENTIALE FORTE [Concomitant]
     Dosage: DAILY DOSE:300MG
     Route: 048
  3. VITAMIN E [Concomitant]
     Dosage: DAILY DOSE:150MG
     Route: 048
  4. VITAMIN A [Concomitant]
     Dosage: DAILY DOSE:2500I.U.
     Route: 048
  5. FLUTICASONE PROPIONATE [Concomitant]
     Indication: CHRONIC OBSTRUCTIVE PULMONARY DISEASE
     Route: 055
     Dates: start: 20030207
  6. SALMETEROL [Concomitant]
     Indication: CHRONIC OBSTRUCTIVE PULMONARY DISEASE
     Route: 055
     Dates: start: 20030207

REACTIONS (1)
  - MYOCARDIAL ISCHAEMIA [None]
